FAERS Safety Report 4310941-1 (Version None)
Quarter: 2004Q1

REPORT INFORMATION
  Report Type: 
  Country: None (occurrence: None)
  Receive Date: 20040302
  Receipt Date: 20040302
  Transmission Date: 20041129
  Serious: Yes (Hospitalization)
  Sender: FDA-Public Use
  Company Number: None

PATIENT
  Sex: Male
  Weight: 74 kg

DRUGS (6)
  1. MESALAMINE [Suspect]
     Indication: COLITIS ULCERATIVE
     Dosage: 400 MG TID ORAL
     Route: 048
     Dates: start: 20031009, end: 20031209
  2. ASPIRIN [Concomitant]
  3. ATENOLOL [Concomitant]
  4. PRINIVIL [Concomitant]
  5. ZOCOR [Concomitant]
  6. QUININE [Concomitant]

REACTIONS (3)
  - BLOOD CREATININE INCREASED [None]
  - BLOOD UREA INCREASED [None]
  - GLOMERULONEPHRITIS [None]
